FAERS Safety Report 6090625-2 (Version None)
Quarter: 2009Q1

REPORT INFORMATION
  Report Type: 
  Country: None (occurrence: None)
  Receive Date: 20090224
  Receipt Date: 20090121
  Transmission Date: 20090719
  Serious: No
  Sender: FDA-Public Use
  Company Number: US-ABBOTT-09P-163-0499366-00

PATIENT
  Sex: Male
  Weight: 81.72 kg

DRUGS (4)
  1. SIMCOR [Suspect]
     Indication: HYPERLIPIDAEMIA
     Dosage: 500/20 MG
     Route: 048
     Dates: start: 20080801, end: 20081001
  2. FENTANYL [Concomitant]
     Indication: BACK PAIN
     Route: 062
  3. FENTANYL [Concomitant]
     Indication: SYRINGOMYELIA
  4. OXYCODONE [Concomitant]
     Indication: PAIN
     Route: 048

REACTIONS (1)
  - FLUSHING [None]
